FAERS Safety Report 4860979-0 (Version None)
Quarter: 2005Q4

REPORT INFORMATION
  Report Type: 
  Country: None (occurrence: None)
  Receive Date: 20051220
  Receipt Date: 20051018
  Transmission Date: 20060501
  Serious: Yes (Other)
  Sender: FDA-Public Use
  Company Number: PHFR2005GB03450

PATIENT
  Age: 70 Year
  Sex: Female

DRUGS (7)
  1. ZOMETA [Suspect]
     Indication: MULTIPLE MYELOMA
     Dosage: UNK, QMO
     Route: 042
     Dates: start: 20021201
  2. ENALAPRIL [Concomitant]
     Indication: BLOOD PRESSURE INCREASED
     Dosage: 10 MG/DAY
     Route: 048
  3. DOXAZOSIN [Concomitant]
     Indication: BLOOD PRESSURE INCREASED
     Dosage: 4 MG/DAY
     Route: 048
  4. FUROSEMIDE [Concomitant]
     Indication: BLOOD PRESSURE INCREASED
     Dosage: 40 MG/DAY
     Route: 048
  5. THALIDOMIDE [Concomitant]
     Indication: BLOOD PRESSURE INCREASED
     Dosage: 200 MG/DAY
     Route: 048
  6. CYCLOPHOSPHAMIDE [Concomitant]
     Dosage: 500 MG/DAY
     Route: 048
  7. DEXAMETHASONE [Concomitant]
     Dosage: 40, UNK
     Route: 048
     Dates: start: 20050201

REACTIONS (4)
  - BONE DEBRIDEMENT [None]
  - IMPAIRED HEALING [None]
  - OSTEONECROSIS [None]
  - TOOTH EXTRACTION [None]
